FAERS Safety Report 5674201-9 (Version None)
Quarter: 2008Q1

REPORT INFORMATION
  Report Type: 
  Country: None (occurrence: None)
  Receive Date: 20080320
  Receipt Date: 20080317
  Transmission Date: 20080703
  Serious: Yes (Hospitalization)
  Sender: FDA-Public Use
  Company Number: PHNU2008DE00722

PATIENT
  Sex: Male

DRUGS (7)
  1. PROVAS [Suspect]
     Route: 048
  2. DICLOFENAC SODIUM [Suspect]
     Indication: ARTHRALGIA
     Dosage: 1 DF/DAY
     Route: 048
  3. NEBIVOLOL HCL [Concomitant]
     Route: 048
  4. HYDROCHLOROTHIAZIDE [Concomitant]
     Route: 065
  5. FINASTERIDE [Concomitant]
     Route: 048
  6. ASPIRIN [Concomitant]
     Route: 048
  7. DOLO-DOBENDAN [Concomitant]
     Dosage: 1 DF/DAY
     Route: 048

REACTIONS (9)
  - BLOOD PRESSURE IMMEASURABLE [None]
  - DIZZINESS [None]
  - HYPERSENSITIVITY [None]
  - OEDEMA PERIPHERAL [None]
  - PERIPHERAL VASCULAR DISORDER [None]
  - PRURITUS [None]
  - PULSE ABSENT [None]
  - RECTAL TENESMUS [None]
  - SYNCOPE [None]
